FAERS Safety Report 4310620-0 (Version None)
Quarter: 2004Q1

REPORT INFORMATION
  Report Type: 
  Country: None (occurrence: None)
  Receive Date: 20040301
  Receipt Date: 20031104
  Transmission Date: 20041129
  Serious: No
  Sender: FDA-Public Use
  Company Number: WAES 0311USA00304

PATIENT
  Age: 74 Year
  Sex: Female
  Weight: 73.9363 kg

DRUGS (6)
  1. ZETIA [Suspect]
     Indication: BLOOD CHOLESTEROL INCREASED
     Dosage: 10MG/DAILY/PO
     Route: 048
     Dates: start: 20030630
  2. ZETIA [Suspect]
     Indication: LIPIDS INCREASED
     Dosage: 10MG/DAILY/PO
     Route: 048
     Dates: start: 20030630
  3. HYDRODIURIL [Concomitant]
  4. ASPIRIN [Concomitant]
  5. IBUPROFEN [Concomitant]
  6. METOPROLOL [Concomitant]

REACTIONS (4)
  - ABDOMINAL PAIN UPPER [None]
  - DYSPEPSIA [None]
  - GASTROOESOPHAGEAL REFLUX DISEASE [None]
  - HOARSENESS [None]
